FAERS Safety Report 16867057 (Version 2)
Quarter: 2019Q4

REPORT INFORMATION
  Report Type: Spontaneous
  Country: US (occurrence: US)
  Receive Date: 20190930
  Receipt Date: 20191014
  Transmission Date: 20200122
  Serious: Yes (Other)
  Sender: FDA-Public Use
  Company Number: US-ADVANZ PHARMA-GSH201901-000171

PATIENT

DRUGS (9)
  1. ESCITALOPRAM [Concomitant]
     Active Substance: ESCITALOPRAM OXALATE
     Dosage: 10 MG, QD
     Route: 048
  2. POSACONAZOLE [Suspect]
     Active Substance: POSACONAZOLE
     Indication: PNEUMONIA FUNGAL
     Dosage: 300 MG, QD
     Route: 048
  3. TORSEMIDE. [Concomitant]
     Active Substance: TORSEMIDE
     Dosage: 20 MG, QD
     Route: 048
  4. ALLOPURINOL. [Concomitant]
     Active Substance: ALLOPURINOL
     Dosage: 300 MG, QD
     Route: 048
  5. VANCOMYCIN [Concomitant]
     Active Substance: VANCOMYCIN
     Indication: FEBRILE NEUTROPENIA
     Dosage: 2.25 G LOADING DOSE,  1 G EVERY 12 H INTRAVENOUSLY
     Route: 042
  6. VANCOMYCIN [Concomitant]
     Active Substance: VANCOMYCIN
     Dosage: 1 G, FREQ: UNK X 12 HOURS
     Route: 042
  7. AZTREONAM. [Concomitant]
     Active Substance: AZTREONAM
     Indication: FEBRILE NEUTROPENIA
     Dosage: 1 G, FREQ: UNK X 6 HOURS
     Route: 042
  8. DIGOXIN. [Suspect]
     Active Substance: DIGOXIN
     Dosage: 0.25 MG, QD MONDAY THROUGH FRIDAY
     Route: 048
  9. METRONIDAZOLE. [Concomitant]
     Active Substance: METRONIDAZOLE
     Indication: FEBRILE NEUTROPENIA
     Dosage: 500 G, FREQ: UNK X 8 HOURS
     Route: 042

REACTIONS (3)
  - Atrial fibrillation [Recovering/Resolving]
  - Drug interaction [Recovering/Resolving]
  - Ventricular tachycardia [Recovered/Resolved]
